FAERS Safety Report 18309510 (Version 3)
Quarter: 2020Q4

REPORT INFORMATION
  Report Type: Spontaneous
  Country: US (occurrence: US)
  Receive Date: 20200924
  Receipt Date: 20201020
  Transmission Date: 20210113
  Serious: Yes (Hospitalization)
  Sender: FDA-Public Use
  Company Number: US-TEVA-2020-US-1829773

PATIENT
  Age: 30 Year
  Sex: Male

DRUGS (8)
  1. HEPARIN [Suspect]
     Active Substance: HEPARIN SODIUM
     Indication: ANTICOAGULANT THERAPY
     Route: 050
  2. SILDENAFIL. [Suspect]
     Active Substance: SILDENAFIL
     Indication: CARDIAC INDEX DECREASED
  3. SILDENAFIL. [Suspect]
     Active Substance: SILDENAFIL
     Indication: PULMONARY HYPERTENSION
     Route: 065
  4. MILRINONE [Suspect]
     Active Substance: MILRINONE
     Indication: CARDIAC INDEX DECREASED
  5. ARGATROBAN. [Concomitant]
     Active Substance: ARGATROBAN
     Indication: ANTICOAGULANT THERAPY
     Route: 050
  6. MILRINONE [Suspect]
     Active Substance: MILRINONE
     Indication: PULMONARY HYPERTENSION
     Route: 065
  7. EPOPROSTENOL. [Suspect]
     Active Substance: EPOPROSTENOL
     Indication: PULMONARY HYPERTENSION
     Route: 055
  8. EPOPROSTENOL. [Suspect]
     Active Substance: EPOPROSTENOL
     Indication: CARDIAC INDEX DECREASED

REACTIONS (2)
  - Heparin-induced thrombocytopenia [Recovered/Resolved]
  - Drug ineffective [Unknown]
